FAERS Safety Report 13710693 (Version 3)
Quarter: 2017Q3

REPORT INFORMATION
  Report Type: Spontaneous
  Country: US (occurrence: US)
  Receive Date: 20170703
  Receipt Date: 20170912
  Transmission Date: 20171127
  Serious: No
  Sender: FDA-Public Use
  Company Number: US-GLAXOSMITHKLINE-US2017099760

PATIENT
  Sex: Female

DRUGS (1)
  1. VENTOLIN HFA [Suspect]
     Active Substance: ALBUTEROL SULFATE
     Indication: ASTHMA
     Dosage: 2 PUFF(S), PRN
     Route: 055
     Dates: start: 2010

REACTIONS (7)
  - Overdose [Unknown]
  - Drug ineffective [Unknown]
  - Retching [Unknown]
  - Drug effect incomplete [Unknown]
  - Cough [Unknown]
  - Dyspnoea [Unknown]
  - Product quality issue [Unknown]
